FAERS Safety Report 11688873 (Version 1)
Quarter: 2015Q4

REPORT INFORMATION
  Report Type: Report from Study
  Country: US (occurrence: US)
  Receive Date: 20151102
  Receipt Date: 20151102
  Transmission Date: 20160304
  Serious: Yes (Other)
  Sender: FDA-Public Use
  Company Number: US-AMGEN-USASL2015113218

PATIENT
  Age: 56 Year
  Sex: Female
  Weight: 65.76 kg

DRUGS (3)
  1. VITAMIN D3 [Concomitant]
     Active Substance: CHOLECALCIFEROL
     Dosage: 3000 UNIT, UNK
  2. PROCRIT [Suspect]
     Active Substance: ERYTHROPOIETIN
     Indication: THALASSAEMIA BETA
     Dosage: 40000 UNIT, TWICE WEEKLY
     Route: 065
  3. IRON [Concomitant]
     Active Substance: IRON
     Dosage: UNK UNK, DAILY

REACTIONS (19)
  - Hepatic cyst [Unknown]
  - Malaise [Unknown]
  - Bone lesion [Unknown]
  - Muscle atrophy [Unknown]
  - Osteoporosis [Unknown]
  - Hiatus hernia [Unknown]
  - Gastric varices [Unknown]
  - Cyst [Unknown]
  - Jaundice [Unknown]
  - Mobility decreased [Recovering/Resolving]
  - Cardiac murmur [Unknown]
  - Fatigue [Not Recovered/Not Resolved]
  - Portal vein thrombosis [Unknown]
  - Epistaxis [Unknown]
  - Musculoskeletal pain [Recovered/Resolved]
  - Lip dry [Unknown]
  - Pulmonary hypertension [Unknown]
  - Renal atrophy [Unknown]
  - Bone disorder [Unknown]

NARRATIVE: CASE EVENT DATE: 20150311
